FAERS Safety Report 18513368 (Version 1)
Quarter: 2020Q4

REPORT INFORMATION
  Report Type: Spontaneous
  Country: US (occurrence: US)
  Receive Date: 20201117
  Receipt Date: 20201117
  Transmission Date: 20210114
  Serious: No
  Sender: FDA-Public Use
  Company Number: US-BTGSP-US-BTGSP-20-0222

PATIENT
  Sex: Male

DRUGS (2)
  1. CROFAB [Suspect]
     Active Substance: CROTALIDAE POLYVALENT IMMUNE FAB (OVINE)
     Dosage: 2 INTERNATIONAL UNIT, 2 SUBSEQUENT DOSES
     Route: 065
     Dates: start: 20200630
  2. CROFAB [Suspect]
     Active Substance: CROTALIDAE POLYVALENT IMMUNE FAB (OVINE)
     Indication: SNAKE BITE
     Dosage: 4 INTERNATIONAL UNIT, 4 DOSES
     Route: 065
     Dates: start: 20200630

REACTIONS (2)
  - Inappropriate schedule of product administration [Unknown]
  - Muscle tightness [Unknown]
